FAERS Safety Report 17870311 (Version 1)
Quarter: 2020Q2

REPORT INFORMATION
  Report Type: Spontaneous
  Country: CA (occurrence: CA)
  Receive Date: 20200608
  Receipt Date: 20200608
  Transmission Date: 20200714
  Serious: Yes (Other)
  Sender: FDA-Public Use
  Company Number: CA-ROCHE-2613975

PATIENT
  Age: 50 Year
  Sex: Male

DRUGS (4)
  1. ACCUTANE [Suspect]
     Active Substance: ISOTRETINOIN
     Indication: ERYTHEMA
  2. OMALIZUMAB. [Suspect]
     Active Substance: OMALIZUMAB
     Indication: ASTHMA
     Route: 058
  3. ACCUTANE [Suspect]
     Active Substance: ISOTRETINOIN
     Indication: ACNE
  4. ACCUTANE [Suspect]
     Active Substance: ISOTRETINOIN
     Indication: ROSACEA
     Route: 065

REACTIONS (10)
  - Dry skin [Unknown]
  - Melanocytic naevus [Unknown]
  - Urticaria [Unknown]
  - Erythema [Unknown]
  - Skin exfoliation [Unknown]
  - Papule [Unknown]
  - Rash pustular [Unknown]
  - Rosacea [Unknown]
  - Acne [Unknown]
  - Dermoid cyst [Unknown]
